FAERS Safety Report 11733270 (Version 2)
Quarter: 2015Q4

REPORT INFORMATION
  Report Type: Spontaneous
  Country: JP (occurrence: JP)
  Receive Date: 20151113
  Receipt Date: 20151209
  Transmission Date: 20160304
  Serious: Yes (Other)
  Sender: FDA-Public Use
  Company Number: JP-JNJFOC-20151107418

PATIENT

DRUGS (2)
  1. FENTANYL. [Suspect]
     Active Substance: FENTANYL
     Indication: PRODUCT USED FOR UNKNOWN INDICATION
     Route: 065
  2. DUROTEP MT [Suspect]
     Active Substance: FENTANYL
     Indication: PRODUCT USED FOR UNKNOWN INDICATION
     Dosage: HALF PATCH OF 1 MG
     Route: 062

REACTIONS (7)
  - Wrong technique in product usage process [Unknown]
  - Nausea [Unknown]
  - Constipation [Unknown]
  - Therapy naive [Unknown]
  - Altered state of consciousness [Unknown]
  - Vomiting [Unknown]
  - Off label use [Unknown]
